FAERS Safety Report 20844950 (Version 6)
Quarter: 2022Q2

REPORT INFORMATION
  Report Type: Spontaneous
  Country: US (occurrence: US)
  Receive Date: 20220518
  Receipt Date: 20220617
  Transmission Date: 20220721
  Serious: Yes (Hospitalization, Other)
  Sender: FDA-Public Use
  Company Number: US-UNITED THERAPEUTICS-UNT-2022-008917

PATIENT
  Sex: Male
  Weight: 90.249 kg

DRUGS (4)
  1. TYVASO [Suspect]
     Active Substance: TREPROSTINIL
     Indication: Pulmonary arterial hypertension
     Dosage: UNK
     Dates: start: 20220413
  2. TYVASO [Suspect]
     Active Substance: TREPROSTINIL
     Dosage: 18-72 ?G, QID
     Dates: start: 202204
  3. TYVASO [Suspect]
     Active Substance: TREPROSTINIL
     Dosage: UNK
     Dates: start: 2022
  4. CARVEDILOL [Suspect]
     Active Substance: CARVEDILOL
     Indication: Product used for unknown indication
     Dosage: UNK
     Route: 065
     Dates: end: 20220510

REACTIONS (13)
  - Cor pulmonale chronic [Unknown]
  - Hypoxia [Unknown]
  - Dyspnoea [Unknown]
  - Blood sodium decreased [Unknown]
  - Pulmonary oedema [Unknown]
  - Oedema peripheral [Not Recovered/Not Resolved]
  - Headache [Recovered/Resolved]
  - Hypotension [Not Recovered/Not Resolved]
  - Fatigue [Unknown]
  - Epistaxis [Unknown]
  - Product dose omission issue [Unknown]
  - Device malfunction [Unknown]
  - Product use complaint [Unknown]

NARRATIVE: CASE EVENT DATE: 20220101
